FAERS Safety Report 10206337 (Version 1)
Quarter: 2014Q2

REPORT INFORMATION
  Report Type: Spontaneous
  Country: JP (occurrence: JP)
  Receive Date: 20140530
  Receipt Date: 20140530
  Transmission Date: 20141212
  Serious: Yes (Other)
  Sender: FDA-Public Use
  Company Number: PHHY2014JP063993

PATIENT
  Age: 14 Year
  Sex: Male

DRUGS (2)
  1. GLIVEC [Suspect]
     Indication: CHRONIC MYELOID LEUKAEMIA
     Dosage: 260MG / M2, DAILY
     Route: 048
     Dates: start: 20140516
  2. GLIVEC [Suspect]
     Indication: OFF LABEL USE

REACTIONS (7)
  - Respiratory disorder [Unknown]
  - Oxygen saturation decreased [Unknown]
  - Erection increased [Unknown]
  - Retinal haemorrhage [Unknown]
  - Nervous system disorder [Unknown]
  - Dizziness [Unknown]
  - Vomiting [Unknown]
